FAERS Safety Report 16211811 (Version 2)
Quarter: 2019Q2

REPORT INFORMATION
  Report Type: Spontaneous
  Country: US (occurrence: US)
  Receive Date: 20190418
  Receipt Date: 20190422
  Transmission Date: 20190711
  Serious: No
  Sender: FDA-Public Use
  Company Number: US-JNJFOC-20190326750

PATIENT
  Sex: Female
  Weight: 60.33 kg

DRUGS (3)
  1. TYLENOL EXTRA STRENGTH [Suspect]
     Active Substance: ACETAMINOPHEN
     Indication: HEADACHE
     Dosage: TWICE DAILY, AS NEEDED, ONCE EVERY TWO MONTHS OR SO
     Route: 048
  2. CALCIUM VITAMIN D3 [Concomitant]
     Indication: NUTRITIONAL SUPPLEMENTATION
     Dosage: DAILY SUPPLEMENTS
     Route: 065
  3. ELIQUIS [Concomitant]
     Active Substance: APIXABAN
     Indication: ANTICOAGULANT THERAPY
     Dosage: DAILY SUPPLEMENTS OF CALCIUM AND VITAMIN D-3 / 2
     Route: 065

REACTIONS (1)
  - Drug ineffective [Unknown]
